FAERS Safety Report 24823995 (Version 1)
Quarter: 2025Q1

REPORT INFORMATION
  Report Type: Spontaneous
  Country: FR (occurrence: FR)
  Receive Date: 20250109
  Receipt Date: 20250109
  Transmission Date: 20250408
  Serious: Yes (Life-Threatening, Other)
  Sender: SANDOZ
  Company Number: FR-SANDOZ-SDZ2025FR001115

PATIENT
  Age: 41 Year
  Sex: Female

DRUGS (1)
  1. BUDESONIDE [Suspect]
     Active Substance: BUDESONIDE
     Indication: Sinus polyp
     Route: 065

REACTIONS (2)
  - Suicidal behaviour [Unknown]
  - Thyrotoxic crisis [Unknown]
